FAERS Safety Report 15217662 (Version 1)
Quarter: 2018Q3

REPORT INFORMATION
  Report Type: Report from Study
  Country: None (occurrence: US)
  Receive Date: 20180730
  Receipt Date: 20180730
  Transmission Date: 20181010
  Serious: Yes (Other)
  Sender: FDA-Public Use
  Company Number: US-ABBVIE-18K-163-2433795-00

PATIENT
  Sex: Female

DRUGS (2)
  1. HUMIRA [Suspect]
     Active Substance: ADALIMUMAB
     Dosage: RECENT DOSE OF HUMIRA WAS 2 SHOTS PER DOCTOR^S REQUEST
     Route: 058
  2. HUMIRA [Suspect]
     Active Substance: ADALIMUMAB
     Indication: RHEUMATOID ARTHRITIS
     Route: 058

REACTIONS (5)
  - Abortion spontaneous [Unknown]
  - Rheumatoid arthritis [Unknown]
  - Back pain [Unknown]
  - Exposure during pregnancy [Unknown]
  - Inflammation [Unknown]
